FAERS Safety Report 5005900-X (Version None)
Quarter: 2006Q2

REPORT INFORMATION
  Report Type: 
  Country: None (occurrence: None)
  Receive Date: 20060517
  Receipt Date: 20060517
  Transmission Date: 20061013
  Serious: Yes (Hospitalization)
  Sender: FDA-Public Use
  Company Number: None

PATIENT
  Age: 76 Year
  Sex: Male

DRUGS (8)
  1. NAPROXEN [Suspect]
     Indication: PAIN
  2. FOSINOPRIL SODIUM [Concomitant]
  3. TETRACYCLINE [Concomitant]
  4. FUROSEMIDE [Concomitant]
  5. HYRDOXYZINE [Concomitant]
  6. POTASSIUM CHLORIDE [Concomitant]
  7. OMEPRAZOLE [Concomitant]
  8. TERAZOSIN HCL [Concomitant]

REACTIONS (1)
  - GASTROINTESTINAL HAEMORRHAGE [None]
